FAERS Safety Report 4749598-4 (Version None)
Quarter: 2005Q3

REPORT INFORMATION
  Report Type: 
  Country: None (occurrence: None)
  Receive Date: 20050819
  Receipt Date: 20050819
  Transmission Date: 20060218
  Serious: Yes (Other)
  Sender: FDA-Public Use
  Company Number: None

PATIENT
  Age: 54 Year
  Sex: Male
  Weight: 111.5849 kg

DRUGS (1)
  1. ETHYOL [Suspect]
     Indication: NEOPLASM MALIGNANT
     Dosage: 500MG SQ Q DAY   7 DOSES SINCE 8/9/05
     Route: 058
     Dates: start: 20050809

REACTIONS (1)
  - RASH MACULAR [None]
